FAERS Safety Report 16345842 (Version 1)
Quarter: 2019Q2

REPORT INFORMATION
  Report Type: Spontaneous
  Country: ES (occurrence: ES)
  Receive Date: 20190523
  Receipt Date: 20190523
  Transmission Date: 20190711
  Serious: Yes (Hospitalization)
  Sender: FDA-Public Use
  Company Number: ES-TEVA-2019-ES-1053160

PATIENT
  Age: 90 Year
  Sex: Male

DRUGS (2)
  1. CEFTRIAXONA (501A) [Suspect]
     Active Substance: CEFTRIAXONE
     Indication: URINARY TRACT INFECTION
     Dosage: 2 GRAM DAILY; 2 GR DIA
     Dates: start: 20180328, end: 20180406
  2. SIMVASTATINA (1023A) [Suspect]
     Active Substance: SIMVASTATIN
     Indication: MYOCARDIAL ISCHAEMIA
     Dosage: 40 MILLIGRAM DAILY;
     Route: 048
     Dates: start: 20120425, end: 20180406

REACTIONS (1)
  - Hepatitis cholestatic [Recovered/Resolved]

NARRATIVE: CASE EVENT DATE: 20180406
